FAERS Safety Report 10792408 (Version 1)
Quarter: 2015Q1

REPORT INFORMATION
  Report Type: Spontaneous
  Country: FR (occurrence: FR)
  Receive Date: 20150213
  Receipt Date: 20150213
  Transmission Date: 20150721
  Serious: Yes (Hospitalization)
  Sender: FDA-Public Use
  Company Number: FR-SA-2015SA016292

PATIENT
  Age: 63 Year
  Sex: Male

DRUGS (9)
  1. TAHOR [Suspect]
     Active Substance: ATORVASTATIN CALCIUM
     Route: 048
  2. LOXEN [Suspect]
     Active Substance: NICARDIPINE HYDROCHLORIDE
     Route: 065
  3. KARDEGIC [Suspect]
     Active Substance: ASPIRIN LYSINE
     Route: 048
  4. LASILIX [Suspect]
     Active Substance: FUROSEMIDE
     Route: 065
  5. LEVOTHYROX [Suspect]
     Active Substance: LEVOTHYROXINE
     Route: 065
  6. TARDYFERON [Suspect]
     Active Substance: FERROUS SULFATE\FOLIC ACID
     Route: 065
  7. COUMADIN [Suspect]
     Active Substance: WARFARIN SODIUM
     Route: 065
  8. TENORMIN [Suspect]
     Active Substance: ATENOLOL
     Route: 065
  9. EUPRESSYL [Suspect]
     Active Substance: URAPIDIL
     Route: 065

REACTIONS (2)
  - Rhabdomyolysis [Unknown]
  - Subdural haemorrhage [Unknown]

NARRATIVE: CASE EVENT DATE: 20140604
